FAERS Safety Report 8821197 (Version 1)
Quarter: 2012Q4

REPORT INFORMATION
  Report Type: 
  Country: US (occurrence: US)
  Receive Date: 20121002
  Receipt Date: 20121002
  Transmission Date: 20130627
  Serious: No
  Sender: FDA-Public Use
  Company Number: US-ASTRAZENECA-2012SE73416

PATIENT
  Age: 57 Year
  Sex: Female

DRUGS (18)
  1. NEXIUM [Suspect]
     Route: 048
     Dates: start: 20120227
  2. ATACAND HCT [Suspect]
     Dosage: 16+12.5 MG DAILY
     Route: 048
     Dates: start: 20110704
  3. LISINOPRIL [Suspect]
     Route: 048
  4. TOPROL XL [Suspect]
     Route: 048
  5. XANAX [Concomitant]
     Indication: ANXIETY
     Dosage: DAILY AS NEEDED
     Route: 048
     Dates: start: 20110623
  6. LORATADINE [Concomitant]
     Route: 048
     Dates: start: 20120227
  7. LEVOTHYROXINE SODIUM [Concomitant]
     Route: 048
     Dates: start: 20110913
  8. FLAX SEED OIL [Concomitant]
     Route: 048
  9. CALTRATE 600+D PLUS [Concomitant]
     Dosage: 600-400 MG UNIT TWO TABLETS DAILY
     Route: 048
  10. ASA [Concomitant]
     Route: 048
  11. ALBUTEROL SULFATE [Concomitant]
     Dosage: (2.5 MG/3 ML) 0.083%, ONE UNIT DOSE EVERY 4 HOURS
  12. KLOR-CON [Concomitant]
  13. LEVOXYL [Concomitant]
     Route: 048
     Dates: start: 20120316
  14. FLOVENT HFA [Concomitant]
     Dosage: 110 MCG/ACT, TWO PUFFS TWO TIMES A DAY
     Dates: start: 20110704
  15. SINGULAIR [Concomitant]
     Route: 048
  16. VENTOLIN HFA [Concomitant]
     Dosage: 108 MCG/ACT TWO PUFFS EVERY 4 HOURS AS NEEDED
  17. LIPITOR [Concomitant]
  18. CITALOPRAM HYDROBROMIDE [Concomitant]

REACTIONS (13)
  - Blepharitis [Unknown]
  - Breast neoplasm [Unknown]
  - Gastrooesophageal reflux disease [Unknown]
  - Dyspepsia [Unknown]
  - Bronchitis [Unknown]
  - Asthma [Unknown]
  - Asthma [Unknown]
  - Body tinea [Unknown]
  - Chest pain [Unknown]
  - Skin papilloma [Unknown]
  - Pain in extremity [Unknown]
  - Myalgia [Unknown]
  - Drug hypersensitivity [Unknown]
